FAERS Safety Report 7038633-9 (Version None)
Quarter: 2010Q4

REPORT INFORMATION
  Report Type: 
  Country: None (occurrence: None)
  Receive Date: 20101011
  Receipt Date: 20100930
  Transmission Date: 20110411
  Serious: No
  Sender: FDA-Public Use
  Company Number: US-PFIZER INC-2010125168

PATIENT
  Sex: Female
  Weight: 54.422 kg

DRUGS (1)
  1. ALPRAZOLAM [Suspect]
     Indication: ANXIETY
     Dosage: 1 MG, 2-3 TIMES DAILY
     Route: 048
     Dates: start: 20080101, end: 20080101

REACTIONS (1)
  - DRUG INEFFECTIVE [None]
